FAERS Safety Report 4681848-5 (Version None)
Quarter: 2005Q2

REPORT INFORMATION
  Report Type: 
  Country: None (occurrence: None)
  Receive Date: 20050602
  Receipt Date: 20050520
  Transmission Date: 20051028
  Serious: Yes (Death, Hospitalization, Other)
  Sender: FDA-Public Use
  Company Number: 2005077584

PATIENT
  Age: 60 Year
  Sex: Male

DRUGS (1)
  1. SILDENAFIL CITRATE [Suspect]
     Dosage: 400 MG (100MG) ORAL
     Route: 048
     Dates: start: 20050501, end: 20050501

REACTIONS (3)
  - COMA [None]
  - MESENTERIC OCCLUSION [None]
  - PANCREATITIS NECROTISING [None]
